FAERS Safety Report 25169313 (Version 2)
Quarter: 2025Q3

REPORT INFORMATION
  Report Type: Report from Study
  Country: US (occurrence: US)
  Receive Date: 20250407
  Receipt Date: 20250807
  Transmission Date: 20251021
  Serious: No
  Sender: AVERITAS
  Company Number: US-GRUNENTHAL-2025-104490

PATIENT
  Sex: Female

DRUGS (3)
  1. QUTENZA [Suspect]
     Active Substance: CAPSAICIN
     Indication: Diabetic neuropathy
     Route: 061
     Dates: start: 20250224, end: 20250224
  2. QUTENZA [Suspect]
     Active Substance: CAPSAICIN
     Route: 061
     Dates: start: 20250616, end: 20250616
  3. R-ALPHA LIPOIC ACID [Concomitant]
     Indication: Discomfort
     Route: 065

REACTIONS (3)
  - Pain [Unknown]
  - Burning sensation [Unknown]
  - Adverse event [Unknown]

NARRATIVE: CASE EVENT DATE: 20250101
